FAERS Safety Report 25697837 (Version 1)
Quarter: 2025Q3

REPORT INFORMATION
  Report Type: Spontaneous
  Country: CN (occurrence: CN)
  Receive Date: 20250819
  Receipt Date: 20250819
  Transmission Date: 20251020
  Serious: Yes (Hospitalization, Disabling)
  Sender: BEIGENE
  Company Number: CN-BEIGENE-BGN-2025-013505

PATIENT
  Age: 59 Year
  Weight: 72.4 kg

DRUGS (20)
  1. TISLELIZUMAB [Suspect]
     Active Substance: TISLELIZUMAB
     Indication: Squamous cell carcinoma of lung
  2. TISLELIZUMAB [Suspect]
     Active Substance: TISLELIZUMAB
     Route: 041
  3. TISLELIZUMAB [Suspect]
     Active Substance: TISLELIZUMAB
     Route: 041
  4. TISLELIZUMAB [Suspect]
     Active Substance: TISLELIZUMAB
  5. NEDAPLATIN [Suspect]
     Active Substance: NEDAPLATIN
     Indication: Squamous cell carcinoma of lung
     Dosage: 70 MILLIGRAM, QD
  6. NEDAPLATIN [Suspect]
     Active Substance: NEDAPLATIN
     Dosage: 70 MILLIGRAM, QD
  7. NEDAPLATIN [Suspect]
     Active Substance: NEDAPLATIN
     Dosage: 70 MILLIGRAM, QD
     Route: 041
  8. NEDAPLATIN [Suspect]
     Active Substance: NEDAPLATIN
     Dosage: 70 MILLIGRAM, QD
     Route: 041
  9. NEDAPLATIN [Suspect]
     Active Substance: NEDAPLATIN
     Dosage: 60 MILLIGRAM, QD
  10. NEDAPLATIN [Suspect]
     Active Substance: NEDAPLATIN
     Dosage: 60 MILLIGRAM, QD
  11. NEDAPLATIN [Suspect]
     Active Substance: NEDAPLATIN
     Dosage: 60 MILLIGRAM, QD
     Route: 041
  12. NEDAPLATIN [Suspect]
     Active Substance: NEDAPLATIN
     Dosage: 60 MILLIGRAM, QD
     Route: 041
  13. GEMCITABINE HYDROCHLORIDE [Suspect]
     Active Substance: GEMCITABINE HYDROCHLORIDE
     Indication: Squamous cell carcinoma of lung
     Dosage: 1.6 GRAM, QD
  14. GEMCITABINE HYDROCHLORIDE [Suspect]
     Active Substance: GEMCITABINE HYDROCHLORIDE
     Dosage: 1.6 GRAM, QD
  15. GEMCITABINE HYDROCHLORIDE [Suspect]
     Active Substance: GEMCITABINE HYDROCHLORIDE
     Dosage: 1.6 GRAM, QD
     Route: 041
  16. GEMCITABINE HYDROCHLORIDE [Suspect]
     Active Substance: GEMCITABINE HYDROCHLORIDE
     Dosage: 1.6 GRAM, QD
     Route: 041
  17. GEMCITABINE HYDROCHLORIDE [Suspect]
     Active Substance: GEMCITABINE HYDROCHLORIDE
     Dosage: 1.6 GRAM, QD
  18. GEMCITABINE HYDROCHLORIDE [Suspect]
     Active Substance: GEMCITABINE HYDROCHLORIDE
     Dosage: 1.6 GRAM, QD
  19. GEMCITABINE HYDROCHLORIDE [Suspect]
     Active Substance: GEMCITABINE HYDROCHLORIDE
     Dosage: 1.6 GRAM, QD
     Route: 041
  20. GEMCITABINE HYDROCHLORIDE [Suspect]
     Active Substance: GEMCITABINE HYDROCHLORIDE
     Dosage: 1.6 GRAM, QD
     Route: 041

REACTIONS (1)
  - Myelosuppression [Recovering/Resolving]
